FAERS Safety Report 9852747 (Version 1)
Quarter: 2014Q1

REPORT INFORMATION
  Report Type: Spontaneous
  Country: US (occurrence: None)
  Receive Date: 20140128
  Receipt Date: 20140128
  Transmission Date: 20141002
  Serious: Yes (Death, Life-Threatening, Hospitalization)
  Sender: FDA-Public Use
  Company Number: None

PATIENT
  Age: 67 Year
  Sex: Male
  Weight: 72.58 kg

DRUGS (3)
  1. DEXILANT [Suspect]
     Indication: GASTROOESOPHAGEAL REFLUX DISEASE
     Dosage: 40-}60 MG (DAILY)?OBE?20 MG B.I.D?P.O.
     Route: 048
     Dates: start: 2012, end: 20121017
  2. DEXILANT [Suspect]
     Indication: COUGH
     Dosage: 40-}60 MG (DAILY)?OBE?20 MG B.I.D?P.O.
     Route: 048
     Dates: start: 2012, end: 20121017
  3. OMEPRAZOLE [Suspect]

REACTIONS (3)
  - Paraesthesia [None]
  - Squamous cell carcinoma [None]
  - Bone cancer metastatic [None]
